FAERS Safety Report 4430320-6 (Version None)
Quarter: 2004Q3

REPORT INFORMATION
  Report Type: 
  Country: None (occurrence: None)
  Receive Date: 20040820
  Receipt Date: 20040616
  Transmission Date: 20050211
  Serious: Yes (Death)
  Sender: FDA-Public Use
  Company Number: GB-AMGEN-US081313

PATIENT
  Sex: Male

DRUGS (4)
  1. ENBREL [Suspect]
     Indication: RHEUMATOID ARTHRITIS
     Route: 058
     Dates: start: 20001218, end: 20040325
  2. LOSEC [Concomitant]
     Dates: start: 19940101
  3. DOTHIEPIN HYDROCHLORIDE [Concomitant]
     Dates: start: 19960101
  4. FOLIC ACID [Concomitant]

REACTIONS (4)
  - BILE DUCT OBSTRUCTION [None]
  - BILIARY CANCER METASTATIC [None]
  - CARDIAC FAILURE CONGESTIVE [None]
  - MYOCARDIAL ISCHAEMIA [None]
